FAERS Safety Report 24213074 (Version 1)
Quarter: 2024Q3

REPORT INFORMATION
  Report Type: Spontaneous
  Country: DZ (occurrence: DZ)
  Receive Date: 20240815
  Receipt Date: 20240815
  Transmission Date: 20241016
  Serious: Yes (Life-Threatening, Other)
  Sender: AMGEN
  Company Number: DZ-AMGEN-DZASP2024160187

PATIENT
  Age: 56 Year
  Sex: Female

DRUGS (4)
  1. VECTIBIX [Suspect]
     Active Substance: PANITUMUMAB
     Indication: Colon cancer metastatic
     Dosage: 492 MILLIGRAM, Q2WK
     Route: 065
     Dates: start: 202407
  2. FLUOROURACIL [Suspect]
     Active Substance: FLUOROURACIL
     Indication: Colon cancer metastatic
     Dosage: UNK
     Route: 065
  3. LEUCOVORIN [Suspect]
     Active Substance: LEUCOVORIN\LEUCOVORIN CALCIUM
     Indication: Colon cancer metastatic
     Dosage: UNK
     Route: 065
  4. OXALIPLATIN [Suspect]
     Active Substance: OXALIPLATIN
     Indication: Colon cancer metastatic
     Dosage: UNK
     Route: 065

REACTIONS (2)
  - Neutropenia [Recovered/Resolved]
  - Anaemia [Unknown]

NARRATIVE: CASE EVENT DATE: 20240101
